FAERS Safety Report 9460762 (Version 1)
Quarter: 2013Q3

REPORT INFORMATION
  Report Type: Spontaneous
  Country: US (occurrence: US)
  Receive Date: 20130815
  Receipt Date: 20130815
  Transmission Date: 20140515
  Serious: Yes (Death)
  Sender: FDA-Public Use
  Company Number: US-GLAXOSMITHKLINE-A1037713A

PATIENT
  Age: 69 Year
  Sex: Male

DRUGS (10)
  1. VOTRIENT [Suspect]
     Indication: RENAL CANCER
     Dosage: 400MG PER DAY
     Route: 048
     Dates: start: 20130617
  2. ACETAMINOPHEN [Concomitant]
  3. MULTIVITAMIN [Concomitant]
  4. CALCIUM [Concomitant]
  5. MAGNESIUM [Concomitant]
  6. VITAMIN D3 [Concomitant]
  7. DULCOLAX [Concomitant]
  8. ACETAMINOPHEN + HYDROCODONE [Concomitant]
  9. NIFEDIPINE [Concomitant]
  10. ZOFRAN [Concomitant]

REACTIONS (1)
  - Death [Fatal]
